FAERS Safety Report 21380358 (Version 1)
Quarter: 2022Q3

REPORT INFORMATION
  Report Type: Report from Study
  Country: AT (occurrence: AT)
  Receive Date: 20220927
  Receipt Date: 20220927
  Transmission Date: 20221027
  Serious: Yes (Hospitalization)
  Sender: FDA-Public Use
  Company Number: AT-ABBVIE-4131405

PATIENT
  Sex: Male

DRUGS (1)
  1. HUMIRA [Suspect]
     Active Substance: ADALIMUMAB
     Indication: Axial spondyloarthritis
     Route: 058
     Dates: start: 202205, end: 202208

REACTIONS (4)
  - Immunodeficiency [Recovered/Resolved]
  - Prostatitis [Recovered/Resolved]
  - Drug ineffective [Not Recovered/Not Resolved]
  - Cystitis noninfective [Recovered/Resolved]

NARRATIVE: CASE EVENT DATE: 20220101
